FAERS Safety Report 16920097 (Version 1)
Quarter: 2019Q4

REPORT INFORMATION
  Report Type: Spontaneous
  Country: US (occurrence: US)
  Receive Date: 20191015
  Receipt Date: 20191015
  Transmission Date: 20200122
  Serious: Yes (Other)
  Sender: FDA-Public Use
  Company Number: US-MALLINCKRODT-T201905448

PATIENT
  Sex: Male

DRUGS (1)
  1. H.P. ACTHAR [Suspect]
     Active Substance: CORTICOTROPIN
     Indication: RHEUMATOID ARTHRITIS
     Dosage: 80 UNITS (1ML), TWICE A WEEK AS DIRECTED
     Route: 058
     Dates: start: 201905, end: 2019

REACTIONS (3)
  - Biopsy lung [Unknown]
  - Infection [Unknown]
  - Lung disorder [Unknown]

NARRATIVE: CASE EVENT DATE: 2019
